FAERS Safety Report 7464331-3 (Version None)
Quarter: 2011Q2

REPORT INFORMATION
  Report Type: 
  Country: None (occurrence: None)
  Receive Date: 20110509
  Receipt Date: 20110428
  Transmission Date: 20111010
  Serious: Yes (Hospitalization)
  Sender: FDA-Public Use
  Company Number: US-BIOGENIDEC-2011BI003221

PATIENT
  Age: 70 Year
  Sex: Female

DRUGS (2)
  1. TYSABRI [Suspect]
     Indication: MULTIPLE SCLEROSIS
     Route: 042
     Dates: start: 20100831, end: 20101102
  2. TYSABRI [Suspect]
     Route: 042
     Dates: start: 20070123, end: 20100209

REACTIONS (7)
  - MULTIPLE SCLEROSIS RELAPSE [None]
  - URINARY TRACT INFECTION [None]
  - APHAGIA [None]
  - STAPHYLOCOCCAL INFECTION [None]
  - PYREXIA [None]
  - SINUSITIS [None]
  - LOSS OF CONTROL OF LEGS [None]
